FAERS Safety Report 23795662 (Version 1)
Quarter: 2024Q2

REPORT INFORMATION
  Report Type: Report from Study
  Country: US (occurrence: US)
  Receive Date: 20240429
  Receipt Date: 20240429
  Transmission Date: 20240716
  Serious: Yes (Other)
  Sender: FDA-Public Use
  Company Number: US-AKCEA THERAPEUTICS, INC.-2024IS002419

PATIENT

DRUGS (10)
  1. INOTERSEN [Suspect]
     Active Substance: INOTERSEN
     Indication: Hereditary neuropathic amyloidosis
     Dosage: 284 MG, QW
     Route: 058
     Dates: start: 20180628
  2. BUMETANIDE [Concomitant]
     Active Substance: BUMETANIDE
     Indication: Product used for unknown indication
     Dosage: 2 MILLIGRAM, BID
     Route: 048
  3. COENZYME Q10 [Concomitant]
     Active Substance: DIETARY SUPPLEMENT\UBIDECARENONE
     Indication: Product used for unknown indication
     Dosage: 100 MILLIGRAM
     Route: 048
  4. MINERALS\VITAMINS [Concomitant]
     Active Substance: MINERALS\VITAMINS
     Indication: Product used for unknown indication
     Dosage: 2 DOSAGE FORM, QD
     Route: 065
  5. VITAMINS [Concomitant]
     Active Substance: VITAMINS
     Indication: Product used for unknown indication
     Dosage: 2 DOSAGE FORM, QD
     Route: 048
  6. POTASSIUM CHLORIDE [Concomitant]
     Active Substance: POTASSIUM CHLORIDE
     Indication: Product used for unknown indication
     Dosage: 1 DOSAGE FORM, BID
     Route: 048
  7. BIFIDOBACTERIUM ANIMALIS LACTIS [Concomitant]
     Active Substance: BIFIDOBACTERIUM ANIMALIS LACTIS
     Indication: Product used for unknown indication
     Dosage: 10 DOSAGE FORM
     Route: 048
  8. XARELTO [Concomitant]
     Active Substance: RIVAROXABAN
     Indication: Product used for unknown indication
     Dosage: 20 MILLIGRAM, QD
     Route: 048
  9. SIMVASTATIN [Concomitant]
     Active Substance: SIMVASTATIN
     Indication: Product used for unknown indication
     Dosage: 20 MILLIGRAM, QD BEDTIME
     Route: 048
  10. RETINOL [Concomitant]
     Active Substance: RETINOL
     Indication: Product used for unknown indication
     Dosage: 15000 UNITS
     Route: 048

REACTIONS (5)
  - Cardiomyopathy [Unknown]
  - Feeling abnormal [Unknown]
  - Dizziness [Unknown]
  - Balance disorder [Unknown]
  - Asthenia [Unknown]
